FAERS Safety Report 18214377 (Version 6)
Quarter: 2020Q4

REPORT INFORMATION
  Report Type: Report from Study
  Country: US (occurrence: US)
  Receive Date: 20200831
  Receipt Date: 20201204
  Transmission Date: 20210113
  Serious: Yes (Other)
  Sender: FDA-Public Use
  Company Number: NVSC2020US239321

PATIENT
  Age: 70 Year
  Sex: Female

DRUGS (4)
  1. COSENTYX [Suspect]
     Active Substance: SECUKINUMAB
     Indication: PSORIASIS
     Dosage: 300 MG, QW
     Route: 058
  2. COSENTYX [Suspect]
     Active Substance: SECUKINUMAB
     Dosage: UNK UNK, QMO
     Route: 058
  3. DONEPEZIL. [Concomitant]
     Active Substance: DONEPEZIL
     Indication: PRODUCT USED FOR UNKNOWN INDICATION
     Dosage: 5 MG, QD (EVERY NIGHT)
     Route: 048
  4. COSENTYX [Suspect]
     Active Substance: SECUKINUMAB
     Dosage: 300 MG, UNKNOWN (WEEKLY FOR AT WEEK 0,1,2,3,4, THEN Q4W THEREAFTER)
     Route: 058

REACTIONS (10)
  - Pain of skin [Unknown]
  - Contusion [Unknown]
  - Skin irritation [Not Recovered/Not Resolved]
  - Skin disorder [Unknown]
  - Pruritus [Unknown]
  - Pneumonia fungal [Unknown]
  - Therapeutic product effect incomplete [Unknown]
  - Coeliac disease [Unknown]
  - Lung neoplasm malignant [Unknown]
  - Injection site erythema [Recovered/Resolved]

NARRATIVE: CASE EVENT DATE: 20200919
